FAERS Safety Report 9299425 (Version 1)
Quarter: 2013Q2

REPORT INFORMATION
  Report Type: Spontaneous
  Country: FR (occurrence: FR)
  Receive Date: 20130520
  Receipt Date: 20130520
  Transmission Date: 20140414
  Serious: Yes (Other)
  Sender: FDA-Public Use
  Company Number: FR-AMGEN-FRACT2013035409

PATIENT
  Age: 31 Year
  Sex: Female

DRUGS (1)
  1. ETANERCEPT [Suspect]
     Dosage: UNK

REACTIONS (3)
  - Hypoaesthesia [Not Recovered/Not Resolved]
  - Demyelination [Not Recovered/Not Resolved]
  - Paraesthesia [Not Recovered/Not Resolved]
